FAERS Safety Report 8269355-4 (Version None)
Quarter: 2012Q2

REPORT INFORMATION
  Report Type: 
  Country: None (occurrence: None)
  Receive Date: 20120409
  Receipt Date: 20120403
  Transmission Date: 20120825
  Serious: Yes (Life-Threatening, Hospitalization, Other)
  Sender: FDA-Public Use
  Company Number: US-GILEAD-2012-0051340

PATIENT
  Sex: Male

DRUGS (2)
  1. PROZAC [Concomitant]
     Indication: DEPRESSION
     Dosage: 10 MG, UNK
     Route: 048
  2. COMPLERA [Suspect]
     Indication: PRODUCT USED FOR UNKNOWN INDICATION
     Dosage: UNK
     Dates: start: 20110801, end: 20111201

REACTIONS (5)
  - SUICIDE ATTEMPT [None]
  - NIGHTMARE [None]
  - UNEVALUABLE EVENT [None]
  - DEPRESSION [None]
  - ABNORMAL DREAMS [None]
